FAERS Safety Report 6112281-7 (Version None)
Quarter: 2009Q1

REPORT INFORMATION
  Report Type: 
  Country: None (occurrence: None)
  Receive Date: 20090311
  Receipt Date: 20090311
  Transmission Date: 20090719
  Serious: No
  Sender: FDA-Public Use
  Company Number: None

PATIENT
  Sex: Male
  Weight: 15.4 kg

DRUGS (4)
  1. LEVITERACETAM 100 MG/ML [Suspect]
     Dosage: 250 MG AM + NOON PO 400 MG HS PO
     Route: 048
  2. LAMICTAL [Concomitant]
  3. LYRICA [Concomitant]
  4. TRANXENE [Concomitant]

REACTIONS (2)
  - CONVULSION [None]
  - THERAPEUTIC RESPONSE UNEXPECTED WITH DRUG SUBSTITUTION [None]
